FAERS Safety Report 6226267-5 (Version None)
Quarter: 2009Q2

REPORT INFORMATION
  Report Type: 
  Country: None (occurrence: None)
  Receive Date: 20090612
  Receipt Date: 20090508
  Transmission Date: 20091009
  Serious: No
  Sender: FDA-Public Use
  Company Number: US-ABBOTT-09P-163-0572866-00

PATIENT
  Sex: Female
  Weight: 74.91 kg

DRUGS (22)
  1. HUMIRA [Suspect]
     Indication: RHEUMATOID ARTHRITIS
     Route: 058
     Dates: start: 20070501, end: 20080423
  2. HUMIRA [Suspect]
     Route: 058
     Dates: start: 20080618, end: 20081225
  3. HUMIRA [Suspect]
     Route: 058
     Dates: start: 20090120, end: 20090427
  4. VERAPAMIL [Concomitant]
     Indication: HYPERTENSION
  5. HYDROCHLOROTHIAZIDE [Concomitant]
     Indication: OEDEMA PERIPHERAL
  6. MACRODANTIN [Concomitant]
     Indication: URINARY TRACT INFECTION
  7. KLONOPIN [Concomitant]
     Indication: DEPRESSION
  8. ESTRACE [Concomitant]
     Indication: HORMONE REPLACEMENT THERAPY
  9. DETROL LA [Concomitant]
     Indication: POLLAKIURIA
  10. LIPITOR [Concomitant]
     Indication: BLOOD CHOLESTEROL INCREASED
  11. CYMBALTA [Concomitant]
     Indication: DEPRESSION
  12. ASPIRIN [Concomitant]
     Indication: CARDIAC DISORDER
  13. AVAPRO [Concomitant]
     Indication: HYPERTENSION
  14. WELLBUTRIN XL [Concomitant]
     Indication: DEPRESSION
  15. PLAQUENIL [Concomitant]
     Indication: RHEUMATOID ARTHRITIS
  16. FOLTEX [Concomitant]
     Indication: OSTEOPOROSIS
  17. DICLOCYCLINE [Concomitant]
     Indication: RHEUMATOID ARTHRITIS
  18. CALCIUM [Concomitant]
     Indication: OSTEOPOROSIS
  19. GLUCOSAMINE HCI WITH CHONDROITIN [Concomitant]
     Indication: RHEUMATOID ARTHRITIS
  20. LOVAZA [Concomitant]
     Indication: RHEUMATOID ARTHRITIS
  21. CLARITIN [Concomitant]
     Indication: HYPERSENSITIVITY
  22. DARVOCET [Concomitant]
     Indication: PAIN

REACTIONS (19)
  - DIARRHOEA [None]
  - DISCOMFORT [None]
  - FALL [None]
  - HERPES ZOSTER [None]
  - INFLUENZA [None]
  - INJECTION SITE ERYTHEMA [None]
  - INJECTION SITE HAEMORRHAGE [None]
  - INJECTION SITE NODULE [None]
  - INJECTION SITE PAIN [None]
  - INJECTION SITE PRURITUS [None]
  - MELANOCYTIC NAEVUS [None]
  - NASOPHARYNGITIS [None]
  - NODULE [None]
  - OSTEOPOROSIS [None]
  - PAIN [None]
  - RASH PAPULAR [None]
  - TOOTH ABSCESS [None]
  - TOOTHACHE [None]
  - VOMITING [None]
